FAERS Safety Report 6471779-2 (Version None)
Quarter: 2009Q4

REPORT INFORMATION
  Report Type: 
  Country: None (occurrence: None)
  Receive Date: 20091203
  Receipt Date: 20080428
  Transmission Date: 20100525
  Serious: No
  Sender: FDA-Public Use
  Company Number: US-ELI_LILLY_AND_COMPANY-US200803005205

PATIENT
  Age: 11 Year
  Sex: Male

DRUGS (4)
  1. ZYPREXA [Suspect]
     Indication: OPPOSITIONAL DEFIANT DISORDER
     Dosage: 2.5 MG, 2/D
     Route: 048
     Dates: start: 20071120, end: 20071130
  2. ZYPREXA [Suspect]
     Dates: start: 20071203, end: 20071214
  3. RITALIN [Concomitant]
     Dosage: 10 MG, 3/D
  4. ZOLOFT [Concomitant]
     Dosage: 25 MG, 2/D

REACTIONS (4)
  - CAPILLARITIS [None]
  - DRUG ERUPTION [None]
  - MOUTH ULCERATION [None]
  - PETECHIAE [None]
